FAERS Safety Report 25198507 (Version 1)
Quarter: 2025Q2

REPORT INFORMATION
  Report Type: Report from Study
  Country: US (occurrence: US)
  Receive Date: 20250415
  Receipt Date: 20250415
  Transmission Date: 20250717
  Serious: Yes (Hospitalization)
  Sender: BIOCODEX
  Company Number: US-BIOCODEX2-2024001910

PATIENT
  Age: 4 Year
  Sex: Male
  Weight: 18.1 kg

DRUGS (4)
  1. DIACOMIT [Suspect]
     Active Substance: STIRIPENTOL
     Indication: Febrile convulsion
     Dosage: 250 MG BY MOUTH TWICE DAILY
     Route: 048
     Dates: start: 20241213
  2. DIACOMIT [Suspect]
     Active Substance: STIRIPENTOL
     Indication: Febrile convulsion
     Dosage: 250 MG BY MOUTH TWICE DAILY
     Route: 048
     Dates: start: 20241213
  3. CLOBAZAM [Concomitant]
     Active Substance: CLOBAZAM
     Indication: Product used for unknown indication
     Route: 065
  4. DEPAKOTE [Concomitant]
     Active Substance: DIVALPROEX SODIUM
     Indication: Product used for unknown indication
     Route: 065

REACTIONS (2)
  - Hospitalisation [Unknown]
  - Off label use [Unknown]

NARRATIVE: CASE EVENT DATE: 20241213
